FAERS Safety Report 7204445-6 (Version None)
Quarter: 2010Q4

REPORT INFORMATION
  Report Type: 
  Country: None (occurrence: None)
  Receive Date: 20101230
  Receipt Date: 20101222
  Transmission Date: 20110411
  Serious: Yes (Other)
  Sender: FDA-Public Use
  Company Number: FR-GENZYME-CLOF-1001156

PATIENT
  Sex: Female
  Weight: 47 kg

DRUGS (23)
  1. EVOLTRA [Suspect]
     Indication: ACUTE MYELOID LEUKAEMIA
     Dosage: 30 MG/M2, QD
     Route: 042
     Dates: start: 20100819, end: 20100823
  2. PRIMPERAN TAB [Concomitant]
     Indication: PAIN
     Dosage: UNK
     Route: 065
     Dates: start: 20100818, end: 20101009
  3. SOLU-MEDROL [Concomitant]
     Indication: PRODUCT USED FOR UNKNOWN INDICATION
     Dosage: UNK
     Route: 065
     Dates: start: 20100819, end: 20100823
  4. ZOFRAN [Concomitant]
     Indication: NAUSEA
     Dosage: UNK
     Route: 065
     Dates: start: 20100818, end: 20101009
  5. LEVOTHYROX [Concomitant]
     Indication: HYPOTHYROIDISM
     Dosage: 75 NG, UNK
     Route: 065
     Dates: start: 19940101
  6. NEXIUM [Concomitant]
     Indication: NAUSEA
     Dosage: 40 MG, UNK
     Route: 065
     Dates: start: 20100812, end: 20100926
  7. CYTARABINE [Concomitant]
     Indication: ACUTE MYELOID LEUKAEMIA
     Dosage: 200 MG/M2, UNK
     Dates: start: 20100617, end: 20100623
  8. BUSULFAN [Concomitant]
     Indication: ACUTE MYELOID LEUKAEMIA
     Route: 065
  9. ENDOXAN [Concomitant]
     Indication: ACUTE MYELOID LEUKAEMIA
     Route: 065
  10. CYCLOSPORINE [Concomitant]
     Indication: PROPHYLAXIS
     Dosage: UNK
     Route: 065
     Dates: end: 20101001
  11. HEPARIN [Concomitant]
     Indication: PRODUCT USED FOR UNKNOWN INDICATION
     Route: 065
  12. DELURSAN [Concomitant]
     Indication: PRODUCT USED FOR UNKNOWN INDICATION
     Route: 065
  13. IMIPENEM AND CILASTATIN [Concomitant]
     Indication: PYREXIA
     Dosage: UNK
     Route: 065
     Dates: end: 20100928
  14. CANCIDAS [Concomitant]
     Indication: PYREXIA
     Dosage: UNK
     Route: 065
     Dates: start: 20100830, end: 20100928
  15. ZOVIRAX [Concomitant]
     Indication: PRODUCT USED FOR UNKNOWN INDICATION
     Dosage: UNK
     Route: 065
     Dates: start: 20100902, end: 20100928
  16. ZELITREX [Concomitant]
     Indication: PRODUCT USED FOR UNKNOWN INDICATION
     Dosage: UNK
     Route: 065
     Dates: start: 20100928
  17. MORPHINE [Concomitant]
     Indication: PALMAR-PLANTAR ERYTHRODYSAESTHESIA SYNDROME
     Route: 065
  18. CORTISONE [Concomitant]
     Indication: PALMAR-PLANTAR ERYTHRODYSAESTHESIA SYNDROME
     Route: 065
  19. ORACILLINE [Concomitant]
     Indication: PRODUCT USED FOR UNKNOWN INDICATION
     Dosage: 2 UNK, UNK
     Route: 065
  20. FLUCONAZOLE [Concomitant]
     Indication: PRODUCT USED FOR UNKNOWN INDICATION
     Route: 065
  21. WELLVONE [Concomitant]
     Indication: PRODUCT USED FOR UNKNOWN INDICATION
     Route: 065
  22. SEROPLEX [Concomitant]
     Indication: PRODUCT USED FOR UNKNOWN INDICATION
     Route: 065
  23. MAGNESIUM [Concomitant]
     Indication: PRODUCT USED FOR UNKNOWN INDICATION
     Route: 065

REACTIONS (2)
  - HEPATOTOXICITY [None]
  - TRANSAMINASES INCREASED [None]
